FAERS Safety Report 7562802-2 (Version None)
Quarter: 2011Q2

REPORT INFORMATION
  Report Type: 
  Country: None (occurrence: None)
  Receive Date: 20110621
  Receipt Date: 20110621
  Transmission Date: 20111010
  Serious: Yes (Life-Threatening, Hospitalization)
  Sender: FDA-Public Use
  Company Number: None

PATIENT
  Age: 34 Year
  Sex: Female
  Weight: 80.3 kg

DRUGS (2)
  1. AVASTIN [Suspect]
     Dosage: 10MG/KG C2W IV
     Route: 042
     Dates: end: 20110607
  2. TAMOXIFEN CITRATE [Concomitant]

REACTIONS (2)
  - CHEST PAIN [None]
  - PULMONARY EMBOLISM [None]
